FAERS Safety Report 15622726 (Version 3)
Quarter: 2019Q1

REPORT INFORMATION
  Report Type: Spontaneous
  Country: US (occurrence: US)
  Receive Date: 20181115
  Receipt Date: 20190122
  Transmission Date: 20190417
  Serious: Yes (Hospitalization)
  Sender: FDA-Public Use
  Company Number: US-ACTELION-A-NJ2018-168070

PATIENT
  Age: 77 Year
  Sex: Female
  Weight: 108.84 kg

DRUGS (7)
  1. ORENITRAM [Concomitant]
     Active Substance: TREPROSTINIL
  2. LASIX [Concomitant]
     Active Substance: FUROSEMIDE
  3. UPTRAVI [Suspect]
     Active Substance: SELEXIPAG
     Dosage: 1200 MCG, BID
     Route: 048
  4. UPTRAVI [Suspect]
     Active Substance: SELEXIPAG
     Indication: PULMONARY ARTERIAL HYPERTENSION
     Dosage: 1000 MCG, BID
     Route: 048
  5. UPTRAVI [Suspect]
     Active Substance: SELEXIPAG
     Dosage: 400 UNK, UNK
     Route: 048
  6. SPIRONOLACTONE. [Concomitant]
     Active Substance: SPIRONOLACTONE
  7. LETAIRIS [Concomitant]
     Active Substance: AMBRISENTAN
     Indication: PRODUCT USED FOR UNKNOWN INDICATION
     Dosage: 10 MG, QD
     Route: 065
     Dates: start: 20140807

REACTIONS (10)
  - Pain in jaw [Not Recovered/Not Resolved]
  - Syncope [Unknown]
  - Dizziness [Not Recovered/Not Resolved]
  - Hypotension [Unknown]
  - Loss of consciousness [Unknown]
  - Dysarthria [Unknown]
  - Unresponsive to stimuli [Unknown]
  - Diarrhoea [Unknown]
  - Dyspnoea [Unknown]
  - Headache [Unknown]
